FAERS Safety Report 8889806 (Version 1)
Quarter: 2012Q4

REPORT INFORMATION
  Report Type: 
  Country: US (occurrence: US)
  Receive Date: 20121107
  Receipt Date: 20121107
  Transmission Date: 20130627
  Serious: No
  Sender: FDA-Public Use
  Company Number: US-009507513-1210USA012490

PATIENT
  Age: 66 Year
  Sex: Female

DRUGS (2)
  1. FOSAMAX PLUS D [Suspect]
     Route: 048
  2. ALENDRONATE SODIUM [Suspect]
     Route: 048

REACTIONS (1)
  - Adverse event [Unknown]
